FAERS Safety Report 4641566-6 (Version None)
Quarter: 2005Q2

REPORT INFORMATION
  Report Type: 
  Country: None (occurrence: None)
  Receive Date: 20050420
  Receipt Date: 20050404
  Transmission Date: 20051028
  Serious: Yes (Death, Hospitalization)
  Sender: FDA-Public Use
  Company Number: USA050494854

PATIENT
  Age: 90 Year
  Sex: Female

DRUGS (12)
  1. FORTEO [Suspect]
     Indication: BONE DISORDER
     Dates: start: 20041101
  2. CARDIZEM [Concomitant]
  3. THEOPHYLLINE [Concomitant]
  4. FUROSEMIDE [Concomitant]
  5. WELLBUTRIN [Concomitant]
  6. PREMARIN [Concomitant]
  7. DULCOLAX [Concomitant]
  8. ASPIRIN [Concomitant]
  9. ARICEPT [Concomitant]
  10. ACIPHEX [Concomitant]
  11. GINKOBA (GINKGO BILOBA EXTRACT) [Concomitant]
  12. NAMENDA (MEMANTINE HYDROCHLORIDE) [Concomitant]

REACTIONS (4)
  - ABDOMINAL PAIN UPPER [None]
  - ANEURYSM [None]
  - PHARMACEUTICAL PRODUCT COMPLAINT [None]
  - UNEVALUABLE EVENT [None]
